FAERS Safety Report 11025931 (Version 1)
Quarter: 2015Q2

REPORT INFORMATION
  Report Type: Report from Study
  Country: US (occurrence: US)
  Receive Date: 20150414
  Receipt Date: 20150414
  Transmission Date: 20150821
  Serious: Yes (Hospitalization, Other)
  Sender: FDA-Public Use
  Company Number: US-BAXTER-2015BAX017967

PATIENT
  Sex: Female

DRUGS (2)
  1. ARALAST NP [Suspect]
     Active Substance: .ALPHA.1-PROTEINASE INHIBITOR HUMAN
     Indication: OFF LABEL USE
  2. ARALAST NP [Suspect]
     Active Substance: .ALPHA.1-PROTEINASE INHIBITOR HUMAN
     Indication: PROTEIN TOTAL DECREASED
     Route: 042

REACTIONS (4)
  - Salpingo-oophoritis [Unknown]
  - Incision site infection [Unknown]
  - Infected cyst [Unknown]
  - Intestinal cyst [Unknown]
